FAERS Safety Report 5128431-5 (Version None)
Quarter: 2006Q4

REPORT INFORMATION
  Report Type: 
  Country: None (occurrence: None)
  Receive Date: 20061017
  Receipt Date: 20061004
  Transmission Date: 20070319
  Serious: Yes (Hospitalization)
  Sender: FDA-Public Use
  Company Number: US-AMGEN-US195988

PATIENT
  Sex: Female

DRUGS (1)
  1. ENBREL [Suspect]
     Indication: DRUG USE FOR UNKNOWN INDICATION
     Route: 058
     Dates: start: 20040101

REACTIONS (5)
  - INJECTION SITE ERYTHEMA [None]
  - INJECTION SITE REACTION [None]
  - JOINT STIFFNESS [None]
  - NIGHT SWEATS [None]
  - PYREXIA [None]
